FAERS Safety Report 20317963 (Version 6)
Quarter: 2022Q3

REPORT INFORMATION
  Report Type: Spontaneous
  Country: US (occurrence: US)
  Receive Date: 20220110
  Receipt Date: 20220705
  Transmission Date: 20221026
  Serious: Yes (Hospitalization, Other)
  Sender: FDA-Public Use
  Company Number: US-MALLINCKRODT-T202200050

PATIENT
  Sex: Female

DRUGS (3)
  1. H.P. ACTHAR [Suspect]
     Active Substance: CORTICOTROPIN
     Indication: Sarcoidosis
     Dosage: 1 MILLILITER, 3 TIMES WEEKLY
     Route: 058
     Dates: start: 20191203
  2. H.P. ACTHAR [Suspect]
     Active Substance: CORTICOTROPIN
     Dosage: 1 MILLILITER, TWICE A WEEK
     Route: 065
  3. H.P. ACTHAR [Suspect]
     Active Substance: CORTICOTROPIN
     Dosage: 80 UNITS ONCE A WEEK
     Route: 065
     Dates: start: 202112

REACTIONS (11)
  - Hospitalisation [Unknown]
  - COVID-19 [Recovering/Resolving]
  - Uterine disorder [Unknown]
  - Hysterectomy [Recovering/Resolving]
  - Anorectal disorder [Unknown]
  - Anorectal operation [Unknown]
  - Illness [Unknown]
  - Pelvic organ prolapse [Unknown]
  - Underdose [Unknown]
  - Inappropriate schedule of product administration [Unknown]
  - Product dose omission issue [Unknown]

NARRATIVE: CASE EVENT DATE: 20210101
